FAERS Safety Report 9454520 (Version 3)
Quarter: 2014Q1

REPORT INFORMATION
  Report Type: Report from Study
  Country: IT (occurrence: IT)
  Receive Date: 20130812
  Receipt Date: 20140103
  Transmission Date: 20141002
  Serious: Yes (Other)
  Sender: FDA-Public Use
  Company Number: IT-US-EMD SERONO, INC.-7215807

PATIENT
  Age: 35 Year
  Sex: Female
  Weight: 90 kg

DRUGS (1)
  1. REBIF [Suspect]
     Indication: MULTIPLE SCLEROSIS
     Dates: start: 20080128

REACTIONS (5)
  - Skin necrosis [Recovering/Resolving]
  - Injection site scab [Recovering/Resolving]
  - Injection site haematoma [Recovering/Resolving]
  - Drug administered at inappropriate site [Unknown]
  - Wrong technique in drug usage process [Unknown]
